FAERS Safety Report 22651846 (Version 1)
Quarter: 2023Q2

REPORT INFORMATION
  Report Type: Spontaneous
  Country: US (occurrence: US)
  Receive Date: 20230628
  Receipt Date: 20230628
  Transmission Date: 20230722
  Serious: No
  Sender: FDA-Public Use
  Company Number: US-CTI BIOPHARMA-2023US03675

PATIENT

DRUGS (17)
  1. VONJO [Suspect]
     Active Substance: PACRITINIB
     Indication: Myelofibrosis
     Dosage: 200 MG, BID
     Dates: start: 20230504
  2. AMOXICILLIN [Concomitant]
     Active Substance: AMOXICILLIN
  3. ACETAMINOPHEN [Concomitant]
     Active Substance: ACETAMINOPHEN
  4. AMIODARONE [Concomitant]
     Active Substance: AMIODARONE
  5. DOCUSATE SOD [Concomitant]
  6. DOXYCYCLINE HYCLATE [Concomitant]
     Active Substance: DOXYCYCLINE HYCLATE
  7. DULOXETINE [Concomitant]
     Active Substance: DULOXETINE
  8. FENTANYL [Concomitant]
     Active Substance: FENTANYL
  9. FERROUS SULFATE [Concomitant]
     Active Substance: FERROUS SULFATE
  10. ELIQUIS [Concomitant]
     Active Substance: APIXABAN
  11. JAKAFI [Concomitant]
     Active Substance: RUXOLITINIB
  12. METOPROLOL TARTRATE [Concomitant]
     Active Substance: METOPROLOL TARTRATE
  13. BACLOFEN [Concomitant]
     Active Substance: BACLOFEN
  14. VITAMINS [Concomitant]
     Active Substance: VITAMINS
  15. SENNA GEN [Concomitant]
     Active Substance: SENNOSIDES
  16. TERAZOSIN [Concomitant]
     Active Substance: TERAZOSIN HYDROCHLORIDE
  17. ZETIA [Concomitant]
     Active Substance: EZETIMIBE

REACTIONS (2)
  - Fluid intake reduced [Unknown]
  - Nausea [Unknown]
